FAERS Safety Report 5650653-5 (Version None)
Quarter: 2008Q1

REPORT INFORMATION
  Report Type: 
  Country: None (occurrence: None)
  Receive Date: 20080305
  Receipt Date: 20080225
  Transmission Date: 20080703
  Serious: Yes (Hospitalization, Other)
  Sender: FDA-Public Use
  Company Number: PHEH2008US02151

PATIENT
  Age: 84 Year
  Sex: Female

DRUGS (3)
  1. ZOMETA [Suspect]
     Indication: HYPERCALCAEMIA OF MALIGNANCY
     Dosage: 4 MG, MONTHLY
     Route: 042
     Dates: start: 20041001
  2. ZOMETA [Suspect]
     Dosage: 3.5 MG, MONTHLY
     Route: 042
  3. ZANTAC 150 [Concomitant]
     Indication: GASTROOESOPHAGEAL REFLUX DISEASE

REACTIONS (9)
  - ARTHRALGIA [None]
  - CONSTIPATION [None]
  - FALL [None]
  - HIP FRACTURE [None]
  - HIP SURGERY [None]
  - IMPAIRED HEALING [None]
  - OSTEONECROSIS [None]
  - RENAL DISORDER [None]
  - TOOTH EXTRACTION [None]
